FAERS Safety Report 8015636-9 (Version None)
Quarter: 2011Q4

REPORT INFORMATION
  Report Type: 
  Country: None (occurrence: None)
  Receive Date: 20111230
  Receipt Date: 20111222
  Transmission Date: 20120403
  Serious: Yes (Death, Hospitalization)
  Sender: FDA-Public Use
  Company Number: JP-AMGEN-JPNCT2011053124

PATIENT
  Age: 52 Year
  Sex: Male
  Weight: 56 kg

DRUGS (16)
  1. HIRUDOID [Concomitant]
     Dosage: UNK
     Route: 062
  2. CORTICOSTEROIDS [Concomitant]
     Indication: PROPHYLAXIS
     Dosage: UNK
     Route: 065
  3. LEVOLEUCOVORIN CALCIUM [Concomitant]
     Indication: COLORECTAL CANCER
     Route: 041
     Dates: start: 20101006, end: 20110105
  4. DECADRON [Concomitant]
     Dosage: UNK
     Route: 048
  5. PANITUMUMAB [Suspect]
     Indication: COLORECTAL CANCER
     Dosage: 6 MG/KG, Q2WK
     Route: 041
     Dates: start: 20101006, end: 20101027
  6. RAMELTEON [Concomitant]
     Dosage: UNK
     Route: 042
  7. LOXONIN [Concomitant]
     Dosage: UNK
     Route: 048
  8. FENTANYL-100 [Concomitant]
     Dosage: UNK
     Route: 062
  9. FAMOTIDINE [Concomitant]
     Dosage: UNK
     Route: 048
  10. FLUOROURACIL [Suspect]
     Indication: COLORECTAL CANCER
     Route: 040
     Dates: start: 20101006, end: 20110105
  11. OXALIPLATIN [Concomitant]
     Indication: COLORECTAL CANCER
     Route: 041
     Dates: start: 20101006, end: 20110105
  12. ROHYPNOL [Concomitant]
     Dosage: UNK
     Route: 048
  13. PANITUMUMAB [Suspect]
     Dosage: 6 MG/KG, Q2WK
     Route: 041
     Dates: start: 20101201, end: 20110105
  14. FLUOROURACIL [Suspect]
     Route: 041
     Dates: start: 20101006, end: 20110105
  15. LENDORMIN [Concomitant]
     Dosage: UNK
     Route: 048
  16. MORPHINE [Concomitant]
     Dosage: UNK
     Route: 048

REACTIONS (3)
  - INTESTINAL OBSTRUCTION [None]
  - DERMATITIS ACNEIFORM [None]
  - COLORECTAL CANCER [None]
